FAERS Safety Report 10654044 (Version 1)
Quarter: 2014Q4

REPORT INFORMATION
  Report Type: Spontaneous
  Country: US (occurrence: None)
  Receive Date: 20141212
  Receipt Date: 20141212
  Transmission Date: 20150529
  Serious: Yes (Other)
  Sender: FDA-Public Use
  Company Number: 2014SA167800

PATIENT
  Age: 76 Year
  Sex: Male

DRUGS (1)
  1. CAPZASIN NO MESS APPLICATOR [Suspect]
     Active Substance: CAPSAICIN
     Dosage: ; UNKNOWN
     Dates: start: 20141202

REACTIONS (3)
  - Application site erythema [None]
  - Expired product administered [None]
  - Application site vesicles [None]

NARRATIVE: CASE EVENT DATE: 20141202
